FAERS Safety Report 6123541-8 (Version None)
Quarter: 2009Q1

REPORT INFORMATION
  Report Type: 
  Country: None (occurrence: None)
  Receive Date: 20090318
  Receipt Date: 20090313
  Transmission Date: 20090719
  Serious: Yes (Hospitalization)
  Sender: FDA-Public Use
  Company Number: US-ABBOTT-08P-163-0490198-00

PATIENT
  Sex: Male
  Weight: 59 kg

DRUGS (20)
  1. ABT-869 [Suspect]
     Indication: RENAL CELL CARCINOMA
     Route: 048
     Dates: start: 20080529, end: 20081110
  2. COLACE [Concomitant]
     Indication: CONSTIPATION
  3. KLONOPIN [Concomitant]
     Indication: ANXIETY
     Dates: end: 20080715
  4. UROXATRAL [Concomitant]
     Indication: BENIGN PROSTATIC HYPERPLASIA
  5. AMBIEN [Concomitant]
     Indication: INSOMNIA
  6. MIRALAX [Concomitant]
     Indication: CONSTIPATION
     Dates: end: 20081111
  7. AVODART [Concomitant]
     Indication: BENIGN PROSTATIC HYPERPLASIA
  8. EFFEXOR [Concomitant]
     Indication: DEPRESSION
  9. NAPROSYN [Concomitant]
     Indication: PAIN
  10. DELSYM [Concomitant]
     Indication: COUGH
  11. SYNTHROID [Concomitant]
     Indication: HYPOTHYROIDISM
     Dates: start: 20080620
  12. NEXIUM [Concomitant]
     Indication: DRUG USE FOR UNKNOWN INDICATION
  13. IMODIUM [Concomitant]
     Indication: DIARRHOEA
  14. REGLAN [Concomitant]
     Indication: NAUSEA
     Dates: start: 20080916
  15. REGLAN [Concomitant]
     Indication: VOMITING
  16. LACTAID [Concomitant]
     Indication: MEDICAL DIET
     Dosage: 3 CAPLETS
     Dates: end: 20081111
  17. TUMS [Concomitant]
     Indication: DRUG USE FOR UNKNOWN INDICATION
  18. SIMETHICONE [Concomitant]
     Indication: DRUG USE FOR UNKNOWN INDICATION
  19. CLARITIN-D [Concomitant]
     Indication: DRUG USE FOR UNKNOWN INDICATION
  20. PANCREASE MT10 [Concomitant]
     Indication: DIARRHOEA
     Dates: start: 20081029

REACTIONS (1)
  - PNEUMOTHORAX [None]
